FAERS Safety Report 7964891-X (Version None)
Quarter: 2011Q4

REPORT INFORMATION
  Report Type: 
  Country: None (occurrence: None)
  Receive Date: 20111208
  Receipt Date: 20111018
  Transmission Date: 20120403
  Serious: Yes (Other)
  Sender: FDA-Public Use
  Company Number: US-ROCHE-1009528

PATIENT
  Sex: Female

DRUGS (5)
  1. NEUPOGEN [Concomitant]
  2. NEUPOGEN [Concomitant]
  3. PEGINTERFERON ALFA-2A [Suspect]
     Indication: HEPATITIS C
     Dates: start: 20110815
  4. COPEGUS [Suspect]
     Indication: HEPATITIS C
     Dates: start: 20110815
  5. ARANESP [Concomitant]

REACTIONS (7)
  - PLATELET COUNT DECREASED [None]
  - HAEMOGLOBIN DECREASED [None]
  - HAEMATOCRIT DECREASED [None]
  - RED BLOOD CELL COUNT DECREASED [None]
  - WHITE BLOOD CELL COUNT INCREASED [None]
  - DIZZINESS [None]
  - MEMORY IMPAIRMENT [None]
